FAERS Safety Report 16960898 (Version 1)
Quarter: 2019Q4

REPORT INFORMATION
  Report Type: Report from Study
  Country: IN (occurrence: IN)
  Receive Date: 20191025
  Receipt Date: 20191025
  Transmission Date: 20200122
  Serious: Yes (Other)
  Sender: FDA-Public Use
  Company Number: NVSC2019IN015016

PATIENT
  Age: 42 Year
  Sex: Female

DRUGS (5)
  1. FOLITRAX [Concomitant]
     Active Substance: METHOTREXATE SODIUM
     Indication: PRODUCT USED FOR UNKNOWN INDICATION
     Dosage: UNK UNK, QD
     Route: 065
  2. A TO Z [Concomitant]
     Active Substance: MINERALS\VITAMINS
     Indication: PRODUCT USED FOR UNKNOWN INDICATION
     Dosage: UNK
     Route: 065
  3. SAZO [Concomitant]
     Active Substance: SULFASALAZINE
     Indication: PRODUCT USED FOR UNKNOWN INDICATION
     Dosage: UNK
     Route: 065
  4. SCAPHO [Suspect]
     Active Substance: SECUKINUMAB
     Indication: SPONDYLOARTHROPATHY
     Dosage: 150 MG, QW
     Route: 058
     Dates: start: 20190730
  5. SCAPHO [Suspect]
     Active Substance: SECUKINUMAB
     Dosage: 150 MG, QW (VIAL) (ONCE A WEEK FOR 4 WEEKS FOLLOWED BY ONCE A MONTH FOR 3 MONTHS)
     Route: 058
     Dates: start: 20190922

REACTIONS (7)
  - Uveitis [Recovered/Resolved]
  - Lacrimation increased [Unknown]
  - Haemoglobin decreased [Unknown]
  - Product use in unapproved indication [Unknown]
  - Pain in extremity [Unknown]
  - Arthralgia [Unknown]
  - Hypertension [Unknown]

NARRATIVE: CASE EVENT DATE: 20190730
